FAERS Safety Report 8217634-9 (Version None)
Quarter: 2012Q1

REPORT INFORMATION
  Report Type: 
  Country: None (occurrence: None)
  Receive Date: 20120305
  Receipt Date: 20111017
  Transmission Date: 20120608
  Serious: No
  Sender: FDA-Public Use
  Company Number: 1000024760

PATIENT
  Age: 65 Year
  Sex: Female

DRUGS (8)
  1. COMBIVENT (COMBIVENT) (COMBIVENT) [Concomitant]
  2. XANAX [Concomitant]
  3. DALIRESP [Suspect]
     Indication: CHRONIC OBSTRUCTIVE PULMONARY DISEASE
     Dosage: 500 MCG (500 MCG, 1 IN 1 D), ORAL
     Route: 048
     Dates: start: 20111009
  4. ADVAIR (SERETIDE) (SERETIDE) [Concomitant]
  5. AMOXICILLIN [Concomitant]
  6. BUDESONIDE [Concomitant]
  7. OXYGEN (OXYGEN) (OXYGEN) [Concomitant]
  8. TYLENOL #3 (ACETAMINOPHEN, CODEINE) (ACETAMINOPHEN, CODEINE) [Concomitant]

REACTIONS (4)
  - PALPITATIONS [None]
  - INSOMNIA [None]
  - TREMOR [None]
  - HEART RATE INCREASED [None]
